FAERS Safety Report 17019448 (Version 1)
Quarter: 2019Q4

REPORT INFORMATION
  Report Type: Spontaneous
  Country: GB (occurrence: GB)
  Receive Date: 20191112
  Receipt Date: 20191112
  Transmission Date: 20200122
  Serious: Yes (Other)
  Sender: FDA-Public Use
  Company Number: GB-TEVA-2019-GB-1135825

PATIENT
  Age: 51 Year
  Sex: Female

DRUGS (11)
  1. TRIAMCINOLONE [Suspect]
     Active Substance: TRIAMCINOLONE
     Dosage: 40 MG
     Dates: start: 20191004, end: 20191004
  2. CODEINE [Concomitant]
     Active Substance: CODEINE
  3. BISOPROLOL [Concomitant]
     Active Substance: BISOPROLOL
  4. LIDOCAINE. [Suspect]
     Active Substance: LIDOCAINE
     Dosage: 4 ML
     Dates: start: 20191004, end: 20191004
  5. ACETYLSALICYLIC ACID [Concomitant]
     Active Substance: ASPIRIN
  6. LOSARTAN. [Concomitant]
     Active Substance: LOSARTAN
  7. IBUPROFEN. [Concomitant]
     Active Substance: IBUPROFEN
  8. DULOXETINE. [Concomitant]
     Active Substance: DULOXETINE
  9. PARACETAMOL [Concomitant]
     Active Substance: ACETAMINOPHEN
  10. MONTELUKAST [Concomitant]
     Active Substance: MONTELUKAST SODIUM
  11. METHOTREXATE. [Concomitant]
     Active Substance: METHOTREXATE

REACTIONS (2)
  - Loss of consciousness [Recovered/Resolved]
  - Syncope [Recovered/Resolved]

NARRATIVE: CASE EVENT DATE: 20191004
